FAERS Safety Report 5929044-5 (Version None)
Quarter: 2008Q4

REPORT INFORMATION
  Report Type: 
  Country: None (occurrence: None)
  Receive Date: 20081024
  Receipt Date: 20081015
  Transmission Date: 20090506
  Serious: Yes (Hospitalization)
  Sender: FDA-Public Use
  Company Number: FR-JNJFOC-20081004316

PATIENT
  Sex: Female

DRUGS (8)
  1. RISPERDAL [Suspect]
     Indication: DRUG USE FOR UNKNOWN INDICATION
     Route: 048
  2. LUDEAL [Suspect]
     Indication: DRUG USE FOR UNKNOWN INDICATION
     Route: 048
  3. THERALENE [Suspect]
     Indication: DRUG USE FOR UNKNOWN INDICATION
     Route: 048
  4. MEPRONIZINE [Concomitant]
     Route: 048
  5. VALIUM [Concomitant]
     Route: 048
  6. BIPROFENID [Concomitant]
     Indication: BACK PAIN
  7. PROPOFAN [Concomitant]
     Indication: BACK PAIN
  8. MIOREL [Concomitant]
     Indication: BACK PAIN

REACTIONS (1)
  - VENOUS THROMBOSIS LIMB [None]
